FAERS Safety Report 8589570-X (Version None)
Quarter: 2012Q3

REPORT INFORMATION
  Report Type: 
  Country: None (occurrence: None)
  Receive Date: 20120813
  Receipt Date: 20120802
  Transmission Date: 20120928
  Serious: Yes (Hospitalization)
  Sender: FDA-Public Use
  Company Number: JP-NAPPMUNDI-MAG-2012-0002239

PATIENT
  Age: 76 Year
  Sex: Female

DRUGS (1)
  1. OXYCODONE HCL [Suspect]
     Indication: BACK PAIN
     Route: 065

REACTIONS (4)
  - NAUSEA [None]
  - MUSCULAR WEAKNESS [None]
  - DYSKINESIA [None]
  - DECREASED APPETITE [None]
